FAERS Safety Report 5216048-3 (Version None)
Quarter: 2006Q4

REPORT INFORMATION
  Report Type: 
  Country: None (occurrence: None)
  Receive Date: 20061122
  Receipt Date: 20060214
  Transmission Date: 20070319
  Serious: Yes (Hospitalization)
  Sender: FDA-Public Use
  Company Number: 2006022222

PATIENT
  Sex: Female

DRUGS (2)
  1. LIPITOR [Suspect]
     Indication: ILL-DEFINED DISORDER
     Dosage: (80 MG), UNKNOWN
  2. PLAVIX [Suspect]
     Indication: ILL-DEFINED DISORDER

REACTIONS (1)
  - LIVER FUNCTION TEST ABNORMAL [None]
